FAERS Safety Report 17388915 (Version 3)
Quarter: 2021Q4

REPORT INFORMATION
  Report Type: Spontaneous
  Country: US (occurrence: US)
  Receive Date: 20200207
  Receipt Date: 20211116
  Transmission Date: 20220303
  Serious: Yes (Other)
  Sender: FDA-Public Use
  Company Number: US-PFIZER INC-2020052461

PATIENT
  Age: 80 Year
  Sex: Female
  Weight: 74.83 kg

DRUGS (1)
  1. ATORVASTATIN CALCIUM [Suspect]
     Active Substance: ATORVASTATIN CALCIUM
     Indication: Blood cholesterol increased
     Dosage: 10 MG, UNK

REACTIONS (6)
  - Limb injury [Unknown]
  - Drug ineffective [Unknown]
  - Finger deformity [Unknown]
  - Discomfort [Unknown]
  - Pruritus [Unknown]
  - Pain in extremity [Unknown]
